FAERS Safety Report 19962511 (Version 2)
Quarter: 2021Q4

REPORT INFORMATION
  Report Type: Report from Study
  Country: CA (occurrence: CA)
  Receive Date: 20211018
  Receipt Date: 20211201
  Transmission Date: 20220303
  Serious: Yes (Other)
  Sender: FDA-Public Use
  Company Number: CA-BIOGEN-2021BI01056188

PATIENT
  Sex: Male

DRUGS (1)
  1. SPINRAZA [Suspect]
     Active Substance: NUSINERSEN
     Indication: Spinal muscular atrophy
     Dosage: DAY 0, 14, 28,58 AND EVERY 4 MONTH THEREAFTER
     Route: 037
     Dates: start: 20200428

REACTIONS (1)
  - Orthopaedic procedure [Recovered/Resolved]
